FAERS Safety Report 22215908 (Version 1)
Quarter: 2023Q2

REPORT INFORMATION
  Report Type: Spontaneous
  Country: US (occurrence: US)
  Receive Date: 20230417
  Receipt Date: 20230417
  Transmission Date: 20230722
  Serious: No
  Sender: FDA-Public Use
  Company Number: US-drreddys-SPO/USA/23/0163231

PATIENT
  Age: 16 Year
  Sex: Female

DRUGS (1)
  1. ZENATANE [Suspect]
     Active Substance: ISOTRETINOIN
     Indication: Product used for unknown indication
     Dosage: RMA ISSUE DATE: 26/MAY/2021 07:20:07 PM, 17/JUN/2021 04:20:35 PM, 22/JULY/2021 07:10:10 PM, 24/AUG/2

REACTIONS (1)
  - Treatment noncompliance [Unknown]
